FAERS Safety Report 18678600 (Version 8)
Quarter: 2021Q1

REPORT INFORMATION
  Report Type: Report from Study
  Country: US (occurrence: US)
  Receive Date: 20201230
  Receipt Date: 20210329
  Transmission Date: 20210419
  Serious: Yes (Hospitalization)
  Sender: FDA-Public Use
  Company Number: US-ROCHE-2738632

PATIENT
  Age: 82 Year
  Sex: Male
  Weight: 81.3 kg

DRUGS (45)
  1. ONDANSETRON HYDROCHLORIDE. [Concomitant]
     Active Substance: ONDANSETRON HYDROCHLORIDE
     Indication: NAUSEA
     Route: 048
  2. FLOMAX [Concomitant]
     Active Substance: TAMSULOSIN HYDROCHLORIDE
     Indication: URGE INCONTINENCE
     Route: 048
     Dates: start: 2018
  3. CALCIUM GLUCONATE. [Concomitant]
     Active Substance: CALCIUM GLUCONATE
     Route: 042
     Dates: start: 20201221, end: 20201221
  4. FLOMAX [Concomitant]
     Active Substance: TAMSULOSIN HYDROCHLORIDE
     Indication: URGE INCONTINENCE
     Route: 048
     Dates: start: 2018
  5. FINASTERIDE. [Concomitant]
     Active Substance: FINASTERIDE
     Indication: BENIGN PROSTATIC HYPERPLASIA
     Route: 048
     Dates: start: 2018
  6. CABOZANTINIB [Suspect]
     Active Substance: CABOZANTINIB
     Indication: RENAL CELL CARCINOMA
     Dosage: 60 MG (THREE 20?MG TABLETS) ADMINISTERED ORALLY ONCE DAILY?DATE OF LAST DOSE OF CABOZANTINIB PRIOR T
     Route: 048
     Dates: start: 20201105
  7. ZOFRAN [Concomitant]
     Active Substance: ONDANSETRON HYDROCHLORIDE
     Indication: NAUSEA
     Dosage: 4 TABS ORALLY EVERY 8 TO 12 HOURS AS NEEDED FOR NAUSEA AND VOMITING.
     Route: 048
  8. ZOFRAN [Concomitant]
     Active Substance: ONDANSETRON HYDROCHLORIDE
     Indication: VOMITING
  9. IPILIMUMAB [Concomitant]
     Active Substance: IPILIMUMAB
     Route: 042
  10. METHYLPREDNISOLONE. [Concomitant]
     Active Substance: METHYLPREDNISOLONE
     Route: 042
  11. IMODIUM AD [Concomitant]
     Active Substance: LOPERAMIDE HYDROCHLORIDE
     Indication: DIARRHOEA
     Route: 048
     Dates: start: 20201208, end: 20201210
  12. LOMOTIL [Concomitant]
     Active Substance: ATROPINE SULFATE\DIPHENOXYLATE HYDROCHLORIDE
     Route: 048
  13. ASPIRIN. [Concomitant]
     Active Substance: ASPIRIN
     Route: 048
  14. GLUCOTROL [Concomitant]
     Active Substance: GLIPIZIDE
     Dosage: PATIENT TAKES 7.5MG PO IN THE MORNING AND 5MG PO AT BEDTIME
     Route: 048
     Dates: start: 201210
  15. LANTUS [Concomitant]
     Active Substance: INSULIN GLARGINE
     Route: 030
     Dates: start: 2012
  16. MAGNESIUM [Concomitant]
     Active Substance: MAGNESIUM
     Route: 048
  17. CEFTRIAXONE SODIUM. [Concomitant]
     Active Substance: CEFTRIAXONE SODIUM
     Dosage: 2 GM?20 ML
     Route: 042
     Dates: start: 20201221, end: 20201221
  18. PROSCAR [Concomitant]
     Active Substance: FINASTERIDE
     Indication: BENIGN PROSTATIC HYPERPLASIA
     Route: 048
     Dates: start: 2018
  19. VITAMIN B12 [Concomitant]
     Active Substance: CYANOCOBALAMIN
     Route: 048
  20. GABAPENTIN. [Concomitant]
     Active Substance: GABAPENTIN
     Indication: NEUROPATHY PERIPHERAL
     Route: 048
     Dates: start: 2017
  21. NIVOLUMAB [Concomitant]
     Active Substance: NIVOLUMAB
     Route: 042
  22. HYDROCORTISONE. [Concomitant]
     Active Substance: HYDROCORTISONE
     Route: 042
  23. DEXTROSE WATER [Concomitant]
     Active Substance: DEXTROSE
     Route: 042
     Dates: start: 20201221, end: 20201221
  24. ONDANSETRON HYDROCHLORIDE. [Concomitant]
     Active Substance: ONDANSETRON HYDROCHLORIDE
     Indication: VOMITING
  25. ALENDRONATE [Concomitant]
     Active Substance: ALENDRONATE SODIUM
     Indication: OSTEOPOROSIS
     Route: 048
     Dates: start: 2018
  26. TAMSULOSIN [Concomitant]
     Active Substance: TAMSULOSIN
     Indication: URGE INCONTINENCE
     Route: 048
     Dates: start: 2018
  27. DIPHENHYDRAMINE. [Concomitant]
     Active Substance: DIPHENHYDRAMINE
     Route: 042
  28. FAMOTIDINE. [Concomitant]
     Active Substance: FAMOTIDINE
     Route: 042
  29. ATORVASTATIN [Concomitant]
     Active Substance: ATORVASTATIN
     Indication: HYPERLIPIDAEMIA
     Route: 048
     Dates: start: 201712
  30. ATEZOLIZUMAB. [Suspect]
     Active Substance: ATEZOLIZUMAB
     Indication: RENAL CELL CARCINOMA
     Dosage: DATE OF LAST DOSE OF ATEZOLIZUMAB PRIOR TO SERIOUS ADVERSE EVENT: 30/NOV/2020 (1200 MG)
     Route: 041
     Dates: start: 20201105
  31. FLUCONAZOLE. [Concomitant]
     Active Substance: FLUCONAZOLE
     Indication: TINEA CRURIS
     Route: 048
     Dates: start: 20201130, end: 20201209
  32. FOSAMAX [Concomitant]
     Active Substance: ALENDRONATE SODIUM
     Indication: OSTEOPOROSIS
     Route: 048
     Dates: start: 2018
  33. LIPITOR [Concomitant]
     Active Substance: ATORVASTATIN CALCIUM
     Indication: HYPERLIPIDAEMIA
     Route: 048
     Dates: start: 201712
  34. SODIUM CHLORIDE. [Concomitant]
     Active Substance: SODIUM CHLORIDE
     Route: 042
     Dates: start: 20201221, end: 20201221
  35. LIDOCAINE;PRILOCAINE [Concomitant]
     Dosage: 1 APPLICATION TOPICALLY ONCE
     Route: 061
  36. VITAMIN D3 [Concomitant]
     Active Substance: CHOLECALCIFEROL
     Indication: OSTEOPOROSIS
     Dosage: 2000 UNT QD
     Route: 048
     Dates: start: 201805
  37. EPINEPHRINE. [Concomitant]
     Active Substance: EPINEPHRINE
     Route: 030
  38. ALBUTEROL SULFATE. [Concomitant]
     Active Substance: ALBUTEROL SULFATE
     Dates: start: 20201221, end: 20201221
  39. INSULIN HUMAN [Concomitant]
     Active Substance: INSULIN HUMAN
     Dosage: 5 UNITS
     Route: 042
     Dates: start: 20201221, end: 20201221
  40. MAG?OX [Concomitant]
     Active Substance: MAGNESIUM OXIDE
     Route: 048
  41. GLIPIZIDE. [Concomitant]
     Active Substance: GLIPIZIDE
     Indication: DIABETES MELLITUS
     Route: 048
     Dates: start: 201210
  42. LOMOTIL [Concomitant]
     Active Substance: ATROPINE SULFATE\DIPHENOXYLATE HYDROCHLORIDE
     Indication: DIARRHOEA
     Dosage: STRENGTH:2.5 MG?0.025 MG?2.5 MG ORALLY 4 TIMES PER DAY AS NEEDED FOR DIARRHEA.
     Route: 048
     Dates: start: 20201211
  43. ECOTRIN [Concomitant]
     Active Substance: ASPIRIN
     Route: 048
  44. GLUCOTROL [Concomitant]
     Active Substance: GLIPIZIDE
     Indication: DIABETES MELLITUS
     Dosage: PATIENT TAKES 7.5MG PO IN THE MORNING AND 5MG PO AT BEDTIME
     Route: 048
     Dates: start: 201210
  45. LANTUS [Concomitant]
     Active Substance: INSULIN GLARGINE
     Indication: DIABETES MELLITUS
     Dosage: 100 UNIT/ML
     Route: 058

REACTIONS (2)
  - Acute kidney injury [Recovered/Resolved]
  - Device related infection [Recovering/Resolving]

NARRATIVE: CASE EVENT DATE: 20201221
